FAERS Safety Report 23217276 (Version 1)
Quarter: 2023Q4

REPORT INFORMATION
  Report Type: Report from Study
  Country: US (occurrence: US)
  Receive Date: 20231122
  Receipt Date: 20231122
  Transmission Date: 20240110
  Serious: Yes (Other)
  Sender: FDA-Public Use
  Company Number: US-UCBSA-2021045616

PATIENT

DRUGS (1)
  1. LEVETIRACETAM [Suspect]
     Active Substance: LEVETIRACETAM
     Indication: Epilepsy

REACTIONS (11)
  - Seizure [Unknown]
  - Anticonvulsant drug level above therapeutic [Unknown]
  - Agitation [Unknown]
  - Aggression [Unknown]
  - Mental status changes [Unknown]
  - Ataxia [Unknown]
  - Dizziness [Unknown]
  - Fatigue [Unknown]
  - Headache [Unknown]
  - Muscular weakness [Unknown]
  - Nystagmus [Unknown]
